FAERS Safety Report 4715173-0 (Version None)
Quarter: 2005Q3

REPORT INFORMATION
  Report Type: 
  Country: None (occurrence: None)
  Receive Date: 20050715
  Receipt Date: 20050712
  Transmission Date: 20060218
  Serious: Yes (Hospitalization)
  Sender: FDA-Public Use
  Company Number: DE-GLAXOSMITHKLINE-D0047065A

PATIENT
  Age: 67 Year
  Sex: Female

DRUGS (1)
  1. QUILONUM RETARD [Suspect]
     Dosage: 450MG TWICE PER DAY
     Route: 048

REACTIONS (2)
  - ANTIPSYCHOTIC DRUG LEVEL INCREASED [None]
  - GAIT DISTURBANCE [None]
